FAERS Safety Report 13790407 (Version 3)
Quarter: 2017Q4

REPORT INFORMATION
  Report Type: Spontaneous
  Country: FR (occurrence: FR)
  Receive Date: 20170725
  Receipt Date: 20171024
  Transmission Date: 20180320
  Serious: Yes (Hospitalization, Other)
  Sender: FDA-Public Use
  Company Number: FR-TEVA-789114ISR

PATIENT
  Sex: Male

DRUGS (1)
  1. ACIDE ALENDRONIQUE BIOGARAN 70 MG COMPRIME [Suspect]
     Active Substance: ALENDRONATE SODIUM
     Indication: PRODUCT USED FOR UNKNOWN INDICATION
     Dosage: 70MG
     Route: 065

REACTIONS (1)
  - Henoch-Schonlein purpura [Unknown]
